FAERS Safety Report 5702885-5 (Version None)
Quarter: 2008Q2

REPORT INFORMATION
  Report Type: 
  Country: None (occurrence: None)
  Receive Date: 20080411
  Receipt Date: 20080401
  Transmission Date: 20081010
  Serious: Yes (Hospitalization)
  Sender: FDA-Public Use
  Company Number: US-MERCK-0802USA00436

PATIENT
  Age: 46 Year
  Sex: Male
  Weight: 61 kg

DRUGS (6)
  1. FOSAMAX [Suspect]
     Indication: OSTEOPOROSIS
     Route: 048
     Dates: start: 20060101
  2. PHENOBARBITAL [Concomitant]
     Indication: CONVULSION
     Route: 065
     Dates: start: 19700101
  3. DICLOFENAC [Concomitant]
     Route: 065
  4. LORATADINE [Concomitant]
     Route: 065
  5. TYLENOL W/ CODEINE NO. 3 [Concomitant]
     Indication: ARTHRALGIA
     Route: 048
     Dates: start: 20030101
  6. AMITRIPTYLINE HCL [Concomitant]
     Indication: ARTHRALGIA
     Route: 048
     Dates: start: 20030101

REACTIONS (6)
  - ASPIRATION [None]
  - CHOKING [None]
  - DYSPHAGIA [None]
  - INAPPROPRIATE SCHEDULE OF DRUG ADMINISTRATION [None]
  - ODYNOPHAGIA [None]
  - PHARYNGITIS [None]
